FAERS Safety Report 7115636-7 (Version None)
Quarter: 2010Q4

REPORT INFORMATION
  Report Type: 
  Country: None (occurrence: None)
  Receive Date: 20101122
  Receipt Date: 20101112
  Transmission Date: 20110411
  Serious: Yes (Death)
  Sender: FDA-Public Use
  Company Number: AU-SANOFI-AVENTIS-2010SA068940

PATIENT
  Age: 85 Year
  Sex: Female

DRUGS (7)
  1. ARAVA [Suspect]
     Route: 048
     Dates: start: 20081120
  2. ARAVA [Suspect]
     Dosage: 5 DAYS IN A WEEK.
     Route: 048
  3. METHOTREXATE [Concomitant]
     Route: 065
  4. FOLIC ACID [Concomitant]
     Route: 065
  5. ANTIHYPERTENSIVES [Concomitant]
     Route: 065
  6. TRAMADOL HCL [Concomitant]
     Route: 065
  7. ACETAMINOPHEN [Concomitant]
     Route: 065

REACTIONS (1)
  - DEATH [None]
